FAERS Safety Report 6338724-1 (Version None)
Quarter: 2009Q3

REPORT INFORMATION
  Report Type: 
  Country: None (occurrence: None)
  Receive Date: 20090903
  Receipt Date: 20090306
  Transmission Date: 20100115
  Serious: No
  Sender: FDA-Public Use
  Company Number: A0772085A

PATIENT
  Age: 67 Year
  Sex: Female

DRUGS (2)
  1. RELENZA [Suspect]
     Indication: INFLUENZA
     Dosage: 2PUFF IN THE MORNING
     Route: 055
     Dates: start: 20090302
  2. LIPITOR [Concomitant]

REACTIONS (1)
  - HEART RATE IRREGULAR [None]
